FAERS Safety Report 10651717 (Version 1)
Quarter: 2014Q4

REPORT INFORMATION
  Report Type: Spontaneous
  Country: US (occurrence: None)
  Receive Date: 20141211
  Receipt Date: 20141211
  Transmission Date: 20150529
  Serious: No
  Sender: FDA-Public Use
  Company Number: PR 2468

PATIENT
  Age: 63 Year
  Sex: Female

DRUGS (4)
  1. COSOPT [Suspect]
     Active Substance: DORZOLAMIDE HYDROCHLORIDE\TIMOLOL MALEATE
     Indication: GLAUCOMA
     Dates: start: 20130115, end: 20131126
  2. PYRIDOSTIGMINE BROMIDE. [Concomitant]
     Active Substance: PYRIDOSTIGMINE BROMIDE
  3. LUMIGAN (BIMATOPROST) [Concomitant]
  4. ZOTON (LANSOPRAZOLE) [Concomitant]

REACTIONS (3)
  - Diplopia [None]
  - Emotional distress [None]
  - Malaise [None]
